FAERS Safety Report 8494403-6 (Version None)
Quarter: 2012Q2

REPORT INFORMATION
  Report Type: 
  Country: None (occurrence: None)
  Receive Date: 20120405
  Receipt Date: 20090107
  Transmission Date: 20120825
  Serious: Yes (Other)
  Sender: FDA-Public Use
  Company Number: PHEH2009US00511

PATIENT
  Age: 53 Year
  Sex: Female

DRUGS (5)
  1. AVAPRO [Concomitant]
  2. NEURONTIN [Concomitant]
  3. RECLAST [Suspect]
     Indication: OSTEOPOROSIS POSTMENOPAUSAL
     Dosage: 5 MG, ONCE/SINGLE, INTRAVENOUS
     Route: 042
     Dates: start: 20081230, end: 20081230
  4. ACIPHEX [Concomitant]
  5. CONJUGATED ESTROGENS [Concomitant]

REACTIONS (3)
  - PYREXIA [None]
  - MYALGIA [None]
  - RASH [None]
